FAERS Safety Report 16358539 (Version 2)
Quarter: 2019Q2

REPORT INFORMATION
  Report Type: Spontaneous
  Country: US (occurrence: US)
  Receive Date: 20190527
  Receipt Date: 20190610
  Transmission Date: 20190711
  Serious: Yes (Other)
  Sender: FDA-Public Use
  Company Number: US-BRISTOL-MYERS SQUIBB COMPANY-BMS-2019-050897

PATIENT
  Sex: Female

DRUGS (1)
  1. ORENCIA [Suspect]
     Active Substance: ABATACEPT
     Indication: RHEUMATOID ARTHRITIS
     Dosage: 750 MILLIGRAM, QMO
     Route: 042
     Dates: start: 20190214

REACTIONS (8)
  - Peripheral swelling [Unknown]
  - Vitamin D decreased [Unknown]
  - Gait disturbance [Unknown]
  - Pain [Unknown]
  - Bronchitis [Unknown]
  - Respiratory tract infection [Unknown]
  - Insomnia [Unknown]
  - Arthritis [Unknown]
